FAERS Safety Report 7487770-3 (Version None)
Quarter: 2011Q2

REPORT INFORMATION
  Report Type: 
  Country: None (occurrence: None)
  Receive Date: 20110518
  Receipt Date: 20110504
  Transmission Date: 20111010
  Serious: Yes (Hospitalization, Other)
  Sender: FDA-Public Use
  Company Number: PHHY2009DE09347

PATIENT
  Age: 69 Year
  Sex: Female

DRUGS (5)
  1. ACETYL SALICYLIC ACID USP BAT [Concomitant]
     Indication: PERIPHERAL ARTERIAL OCCLUSIVE DISEASE
     Dosage: 100 MG, DAILY
     Route: 048
  2. DOXAZOSIN MESYLATE [Interacting]
     Indication: HYPERTENSION
     Dosage: 2 MG, DAILY
     Route: 048
  3. EXFORGE [Interacting]
     Indication: HYPERTENSION
     Dosage: 160 MG VALSARTAN/10 MG AMLODIPINE, DAILY
     Route: 048
  4. METOPROLOL SUCCINATE [Suspect]
     Indication: HYPERTENSION
     Dosage: 142.5 MG DAILY
     Route: 048
     Dates: end: 20090101
  5. RAMIPRIL [Interacting]
     Indication: HYPERTENSION
     Dosage: 5 MG, BID
     Route: 048

REACTIONS (8)
  - MITRAL VALVE INCOMPETENCE [None]
  - AORTIC VALVE INCOMPETENCE [None]
  - SINUS BRADYCARDIA [None]
  - HEART RATE DECREASED [None]
  - AORTIC VALVE SCLEROSIS [None]
  - SYNCOPE [None]
  - BLOOD PRESSURE DIASTOLIC DECREASED [None]
  - DRUG INTERACTION [None]
